FAERS Safety Report 6255769-0 (Version None)
Quarter: 2009Q3

REPORT INFORMATION
  Report Type: 
  Country: None (occurrence: None)
  Receive Date: 20090701
  Receipt Date: 20090622
  Transmission Date: 20100115
  Serious: Yes (Other)
  Sender: FDA-Public Use
  Company Number: 2009AP001191

PATIENT
  Age: 28 Year
  Sex: Male

DRUGS (2)
  1. CLONAZEPAM [Suspect]
     Indication: ANXIETY
     Dosage: 0.5 MG; QD; PO
     Route: 048
     Dates: start: 20080101, end: 20090509
  2. CLONAZEPAM [Suspect]
     Indication: PANIC ATTACK
     Dosage: 0.5 MG; QD; PO
     Route: 048
     Dates: start: 20080101, end: 20090509

REACTIONS (14)
  - DIZZINESS [None]
  - DRUG DEPENDENCE [None]
  - DRUG INEFFECTIVE [None]
  - DRUG WITHDRAWAL SYNDROME [None]
  - GASTRITIS [None]
  - INAPPROPRIATE SCHEDULE OF DRUG ADMINISTRATION [None]
  - MUSCLE SPASMS [None]
  - MUSCLE TWITCHING [None]
  - NASAL CONGESTION [None]
  - PALPITATIONS [None]
  - PRODUCTIVE COUGH [None]
  - RESPIRATORY TRACT INFECTION [None]
  - RHINORRHOEA [None]
  - SINUSITIS [None]
